FAERS Safety Report 11225156 (Version 1)
Quarter: 2015Q2

REPORT INFORMATION
  Report Type: Spontaneous
  Country: BR (occurrence: BR)
  Receive Date: 20150629
  Receipt Date: 20150629
  Transmission Date: 20150821
  Serious: Yes (Hospitalization)
  Sender: FDA-Public Use
  Company Number: BR-PFIZER INC-2015212858

PATIENT
  Age: 35 Year
  Sex: Female
  Weight: 99 kg

DRUGS (6)
  1. LYRICA [Suspect]
     Active Substance: PREGABALIN
     Indication: PAIN
     Dosage: UNK
     Dates: start: 2010
  2. FRONTAL [Suspect]
     Active Substance: ALPRAZOLAM
     Indication: MULTIPLE SCLEROSIS
     Dosage: UNK
     Dates: start: 2010
  3. AMPLICTIL /00011901/ [Concomitant]
  4. LIORESAL [Concomitant]
     Active Substance: BACLOFEN
  5. OXYCONTIN [Concomitant]
     Active Substance: OXYCODONE HYDROCHLORIDE
  6. TEGRETOL [Concomitant]
     Active Substance: CARBAMAZEPINE

REACTIONS (2)
  - Condition aggravated [Unknown]
  - Pain [Unknown]
